FAERS Safety Report 16023162 (Version 1)
Quarter: 2019Q1

REPORT INFORMATION
  Report Type: Spontaneous
  Country: DE (occurrence: DE)
  Receive Date: 20190301
  Receipt Date: 20190301
  Transmission Date: 20190418
  Serious: Yes (Hospitalization)
  Sender: FDA-Public Use
  Company Number: DE-PFIZER INC-2019086420

PATIENT
  Age: 12 Year
  Sex: Female
  Weight: 39 kg

DRUGS (7)
  1. PANTOPRAZOLE [Concomitant]
     Active Substance: PANTOPRAZOLE
     Indication: GASTROINTESTINAL DISORDER PROPHYLAXIS
     Dosage: DAILY DOSE: 40 MG MILLGRAM(S) EVERY DAYS
     Route: 048
     Dates: start: 20180820
  2. METHOTREXATE SODIUM. [Suspect]
     Active Substance: METHOTREXATE SODIUM
     Indication: POLYARTHRITIS
     Dosage: 15 MG, WEEKLY (INTAKE ON SATURDAYS)
     Route: 058
     Dates: start: 20180601
  3. L-THYROX [Concomitant]
     Active Substance: LEVOTHYROXINE SODIUM
     Indication: HYPOTHYROIDISM
     Dosage: DAILY DOSE: 50 ?G MICROGRAM(S) EVERY DAYS
     Route: 048
  4. VITAMIN D [Concomitant]
     Active Substance: CHOLECALCIFEROL
     Dosage: DAILY DOSE: 1 MG MILLGRAM(S) EVERY DAYS
     Route: 048
  5. PREDNISOLONE. [Suspect]
     Active Substance: PREDNISOLONE
     Indication: POLYARTHRITIS
     Dosage: DAILY DOSE: 5 MG MILLGRAM(S) EVERY DAYS
     Route: 048
     Dates: start: 20180601
  6. IBUPROFEN. [Suspect]
     Active Substance: IBUPROFEN
     Indication: POLYARTHRITIS
     Dosage: 400 MG, 1-1-1/2 (1DF IN THE MORNING- 1DF AT NOON - 0.5DF IN THE EVENING)
     Route: 048
     Dates: start: 20180601
  7. FOLSAEURE [Concomitant]
     Active Substance: FOLIC ACID
     Indication: POLYARTHRITIS
     Dosage: 5 MG, WEEKLY (INTAKE ON SUNDAYS)
     Route: 048
     Dates: start: 20180601

REACTIONS (4)
  - Vomiting [Recovering/Resolving]
  - Gastritis [Recovering/Resolving]
  - Abdominal pain [Recovering/Resolving]
  - Nausea [Recovering/Resolving]

NARRATIVE: CASE EVENT DATE: 20180818
